FAERS Safety Report 4555675-3 (Version None)
Quarter: 2005Q1

REPORT INFORMATION
  Report Type: 
  Country: None (occurrence: None)
  Receive Date: 20050118
  Receipt Date: 20050103
  Transmission Date: 20050727
  Serious: Yes (Death)
  Sender: FDA-Public Use
  Company Number: 2004S1003649

PATIENT
  Age: 55 Year
  Sex: Female

DRUGS (6)
  1. CLOZAPINE [Suspect]
     Dosage: 200 MG HS, ORAL
     Route: 048
     Dates: start: 20031223
  2. METFORMIN HCL [Concomitant]
  3. CELECOXIB [Concomitant]
  4. TEMAZEPAM [Concomitant]
  5. LISINOPRIL [Concomitant]
  6. FENOFIBRATE [Concomitant]

REACTIONS (1)
  - DEATH [None]
